FAERS Safety Report 5047563-3 (Version None)
Quarter: 2006Q3

REPORT INFORMATION
  Report Type: 
  Country: None (occurrence: None)
  Receive Date: 20060705
  Receipt Date: 20060705
  Transmission Date: 20061208
  Serious: Yes (Life-Threatening)
  Sender: FDA-Public Use
  Company Number: None

PATIENT
  Age: 34 Year
  Sex: Female
  Weight: 58.0604 kg

DRUGS (1)
  1. ALBUTEROL [Suspect]
     Indication: ASTHMA

REACTIONS (3)
  - CHOKING [None]
  - FOREIGN BODY ASPIRATION [None]
  - HAEMORRHAGE [None]
